FAERS Safety Report 6024690-5 (Version None)
Quarter: 2008Q4

REPORT INFORMATION
  Report Type: 
  Country: None (occurrence: None)
  Receive Date: 20081231
  Receipt Date: 20081219
  Transmission Date: 20090506
  Serious: Yes (Death, Hospitalization, Other)
  Sender: FDA-Public Use
  Company Number: AT-CELGENEUS-009-21880-08121271

PATIENT
  Sex: Female
  Weight: 74 kg

DRUGS (6)
  1. REVLIMID [Suspect]
     Indication: PLASMACYTOMA
     Dates: start: 20071024, end: 20080606
  2. PREDNISOLONE [Concomitant]
     Indication: PLASMACYTOMA
     Route: 048
  3. SELOKEN [Concomitant]
     Indication: DRUG USE FOR UNKNOWN INDICATION
     Route: 048
  4. AMLODIPINE [Concomitant]
     Indication: DRUG USE FOR UNKNOWN INDICATION
     Route: 048
  5. PANTALOC [Concomitant]
     Indication: DRUG USE FOR UNKNOWN INDICATION
     Route: 048
  6. ROCALTROL [Concomitant]
     Indication: DRUG USE FOR UNKNOWN INDICATION
     Route: 048

REACTIONS (11)
  - ATRIAL FIBRILLATION [None]
  - BACK PAIN [None]
  - CARDIAC ARREST [None]
  - CARDIAC FAILURE [None]
  - CHOLECYSTITIS [None]
  - DIARRHOEA [None]
  - MUSCLE SPASMS [None]
  - PLASMACYTOMA [None]
  - PNEUMONIA [None]
  - RESPIRATORY FAILURE [None]
  - SEPTIC SHOCK [None]
